FAERS Safety Report 6095191-3 (Version None)
Quarter: 2009Q1

REPORT INFORMATION
  Report Type: 
  Country: None (occurrence: None)
  Receive Date: 20090227
  Receipt Date: 20080211
  Transmission Date: 20090719
  Serious: No
  Sender: FDA-Public Use
  Company Number: A0708686A

PATIENT
  Age: 59 Year
  Sex: Female

DRUGS (7)
  1. LAMICTAL [Suspect]
     Indication: MAJOR DEPRESSION
     Dosage: 200MG TWICE PER DAY
     Route: 048
     Dates: start: 20050101, end: 20080206
  2. SEROQUEL [Concomitant]
  3. ZOCOR [Concomitant]
  4. EFFEXOR [Concomitant]
  5. AMBIEN [Concomitant]
  6. PATANOL [Concomitant]
  7. MAGIC MOUTHWASH [Concomitant]

REACTIONS (7)
  - CONJUNCTIVITIS [None]
  - DYSPHAGIA [None]
  - ERYTHEMA [None]
  - EYE DISORDER [None]
  - GINGIVAL SWELLING [None]
  - INFLUENZA LIKE ILLNESS [None]
  - STOMATITIS [None]
